FAERS Safety Report 6456162-8 (Version None)
Quarter: 2009Q4

REPORT INFORMATION
  Report Type: 
  Country: None (occurrence: None)
  Receive Date: 20091125
  Receipt Date: 20091118
  Transmission Date: 20100525
  Serious: Yes (Hospitalization, Other)
  Sender: FDA-Public Use
  Company Number: NL-JNJFOC-20091102644

PATIENT
  Sex: Female
  Weight: 90 kg

DRUGS (11)
  1. INFLIXIMAB, RECOMBINANT [Suspect]
     Route: 042
     Dates: start: 20090213, end: 20090529
  2. INFLIXIMAB, RECOMBINANT [Suspect]
     Indication: POLYARTHRITIS
     Dosage: 0,2,6 WEEKS
     Route: 042
     Dates: start: 20090213, end: 20090529
  3. METHOTREXATE [Suspect]
     Route: 048
     Dates: start: 20090213, end: 20090529
  4. METHOTREXATE [Suspect]
     Indication: POLYARTHRITIS
     Route: 048
     Dates: start: 20090213, end: 20090529
  5. ETANERCEPT [Concomitant]
     Indication: POLYARTHRITIS
  6. OMEPRAZOLE [Concomitant]
     Indication: GASTROINTESTINAL DISORDER THERAPY
     Route: 048
  7. FOLATE [Concomitant]
     Dosage: 5MG ON 2 DAYS PER WEEK
  8. APROVEL [Concomitant]
     Indication: HYPERTENSION
     Route: 048
  9. HYDROCHLOROTHIAZIDE [Concomitant]
     Indication: HYPERTENSION
     Route: 048
  10. ALENDRONINEZUUR [Concomitant]
     Indication: OSTEOPOROSIS PROPHYLAXIS
     Route: 048
  11. LEFLUNOMIDE [Concomitant]
     Indication: POLYARTHRITIS

REACTIONS (1)
  - SYSTEMIC LUPUS ERYTHEMATOSUS [None]
